FAERS Safety Report 19001614 (Version 1)
Quarter: 2021Q1

REPORT INFORMATION
  Report Type: Spontaneous
  Country: US (occurrence: US)
  Receive Date: 20210312
  Receipt Date: 20210312
  Transmission Date: 20210420
  Serious: No
  Sender: FDA-Public Use
  Company Number: US-FARMAPROD-202011-1476

PATIENT
  Sex: Female

DRUGS (2)
  1. OXERVATE [Suspect]
     Active Substance: CENEGERMIN-BKBJ
     Indication: NEUROTROPHIC KERATOPATHY
     Route: 047
     Dates: start: 20200929
  2. PREDNISONE. [Concomitant]
     Active Substance: PREDNISONE
     Dosage: DISPERSIBLE TABLET PACK

REACTIONS (2)
  - Eye pain [Unknown]
  - Photophobia [Unknown]
